FAERS Safety Report 25398636 (Version 3)
Quarter: 2025Q4

REPORT INFORMATION
  Report Type: Report from Study
  Country: US (occurrence: US)
  Receive Date: 20250604
  Receipt Date: 20251230
  Transmission Date: 20260118
  Serious: Yes (Other)
  Sender: MALLINCKRODT
  Company Number: US-MALLINCKRODT-MNK202500649

PATIENT
  Age: 76 Year
  Sex: Female

DRUGS (5)
  1. CORTICOTROPIN [Suspect]
     Active Substance: CORTICOTROPIN
     Indication: Rheumatoid arthritis
     Dosage: 40 UNITS
     Route: 058
     Dates: start: 20220414, end: 2022
  2. CORTICOTROPIN [Suspect]
     Active Substance: CORTICOTROPIN
     Indication: Rheumatoid arthritis
     Dosage: 40 UNITS
     Route: 058
     Dates: start: 202212
  3. CORTICOTROPIN [Suspect]
     Active Substance: CORTICOTROPIN
     Indication: Systemic lupus erythematosus
     Dosage: 40 UNITS
  4. METHOTREXATE [Suspect]
     Active Substance: METHOTREXATE
     Indication: Product used for unknown indication
     Dosage: UNKNOWN
  5. BENLYSTA [Concomitant]
     Active Substance: BELIMUMAB

REACTIONS (10)
  - Rheumatoid arthritis [Unknown]
  - Systemic lupus erythematosus [Not Recovered/Not Resolved]
  - Renal impairment [Unknown]
  - Blood iron decreased [Unknown]
  - Gastrointestinal disorder [Unknown]
  - Serum ferritin decreased [Unknown]
  - Renal disorder [Unknown]
  - Injection site discolouration [Not Recovered/Not Resolved]
  - Injection site pain [Unknown]
  - Diarrhoea [Unknown]

NARRATIVE: CASE EVENT DATE: 20250101
